FAERS Safety Report 8183017-3 (Version None)
Quarter: 2012Q1

REPORT INFORMATION
  Report Type: 
  Country: None (occurrence: None)
  Receive Date: 20120305
  Receipt Date: 20120222
  Transmission Date: 20120608
  Serious: Yes (Hospitalization)
  Sender: FDA-Public Use
  Company Number: US-SANOFI-AVENTIS-2012SA006419

PATIENT
  Age: 74 Year
  Sex: Male
  Weight: 62 kg

DRUGS (5)
  1. CRESTOR [Concomitant]
     Dates: start: 20100101
  2. LANTUS [Suspect]
     Indication: TYPE 2 DIABETES MELLITUS
     Dosage: DOSE:10 UNIT(S)
     Route: 058
     Dates: start: 20120117
  3. SOLOSTAR [Suspect]
     Indication: TYPE 2 DIABETES MELLITUS
     Dates: start: 20120117
  4. LANTUS [Suspect]
     Dosage: DOSE:15 UNIT(S)
     Route: 058
     Dates: start: 20120201
  5. QUINAPRIL [Concomitant]
     Indication: BLOOD PRESSURE
     Dates: start: 20100101

REACTIONS (6)
  - THIRST [None]
  - PRODUCT QUALITY ISSUE [None]
  - DIZZINESS [None]
  - HYPERGLYCAEMIA [None]
  - FATIGUE [None]
  - SYNCOPE [None]
